FAERS Safety Report 16650781 (Version 1)
Quarter: 2019Q3

REPORT INFORMATION
  Report Type: Spontaneous
  Country: US (occurrence: US)
  Receive Date: 20190731
  Receipt Date: 20190731
  Transmission Date: 20191004
  Serious: No
  Sender: FDA-Public Use
  Company Number: US-JNJFOC-20190735110

PATIENT
  Age: 81 Year
  Sex: Female

DRUGS (2)
  1. TYLENOL [Suspect]
     Active Substance: ACETAMINOPHEN
     Indication: ARTHRALGIA
     Dosage: 2 CAPLETS AT 12:30PM AND 1 CAPLET 6 1/2 HOURS LATER
     Route: 048
     Dates: start: 20190722
  2. TYLENOL [Suspect]
     Active Substance: ACETAMINOPHEN
     Dosage: 2 CAPLETS AT 12:30PM AND 1 CAPLET 6 1/2 HOURS LATER
     Route: 048
     Dates: start: 20190722

REACTIONS (2)
  - Inappropriate schedule of product administration [Unknown]
  - Incorrect dose administered [Unknown]

NARRATIVE: CASE EVENT DATE: 20190722
